FAERS Safety Report 8463821-4 (Version None)
Quarter: 2012Q2

REPORT INFORMATION
  Report Type: 
  Country: None (occurrence: None)
  Receive Date: 20120625
  Receipt Date: 20111207
  Transmission Date: 20120825
  Serious: No
  Sender: FDA-Public Use
  Company Number: US-BRISTOL-MYERS SQUIBB COMPANY-16159345

PATIENT
  Age: 54 Year
  Sex: Female
  Weight: 58 kg

DRUGS (3)
  1. AVALIDE [Suspect]
     Indication: HYPERTENSION
     Dosage: 1DF=150/12.5 MG
  2. AVAPRO [Suspect]
     Indication: HYPERTENSION
  3. MONOPRIL [Suspect]

REACTIONS (2)
  - PHARYNGEAL OEDEMA [None]
  - COUGH [None]
